FAERS Safety Report 18047090 (Version 1)
Quarter: 2020Q3

REPORT INFORMATION
  Report Type: Spontaneous
  Country: US (occurrence: US)
  Receive Date: 20200720
  Receipt Date: 20200720
  Transmission Date: 20201103
  Serious: No
  Sender: FDA-Public Use
  Company Number: US-ROCHE-2477040

PATIENT
  Sex: Male
  Weight: 77.18 kg

DRUGS (10)
  1. GARLIC. [Concomitant]
     Active Substance: GARLIC
     Indication: NEUROPATHY PERIPHERAL
  2. VP?16 [Suspect]
     Active Substance: ETOPOSIDE
     Indication: SMALL CELL LUNG CANCER
     Route: 065
     Dates: start: 201901
  3. NEULASTA [Concomitant]
     Active Substance: PEGFILGRASTIM
  4. GLUCOSAMINE [Concomitant]
     Active Substance: GLUCOSAMINE
     Indication: NEUROPATHY PERIPHERAL
  5. FISH OIL [Concomitant]
     Active Substance: FISH OIL
     Indication: NEUROPATHY PERIPHERAL
  6. GINGKO BILOBA [Concomitant]
     Active Substance: GINKGO
     Indication: NEUROPATHY PERIPHERAL
  7. CARBOPLATIN. [Suspect]
     Active Substance: CARBOPLATIN
     Indication: SMALL CELL LUNG CANCER
     Route: 065
     Dates: start: 201901
  8. VITAMIN C [Concomitant]
     Active Substance: ASCORBIC ACID
     Indication: NEUROPATHY PERIPHERAL
  9. RADIATION THERAPY [Concomitant]
     Active Substance: RADIATION THERAPY
     Indication: SMALL CELL LUNG CANCER
  10. TECENTRIQ [Suspect]
     Active Substance: ATEZOLIZUMAB
     Indication: SMALL CELL LUNG CANCER
     Dosage: ONGOING: NO
     Route: 042
     Dates: start: 201901

REACTIONS (6)
  - Muscular weakness [Recovering/Resolving]
  - Rash [Recovering/Resolving]
  - Arthralgia [Recovering/Resolving]
  - Balance disorder [Not Recovered/Not Resolved]
  - Clumsiness [Not Recovered/Not Resolved]
  - Weight decreased [Unknown]

NARRATIVE: CASE EVENT DATE: 2019
